FAERS Safety Report 5078253-9 (Version None)
Quarter: 2006Q3

REPORT INFORMATION
  Report Type: 
  Country: None (occurrence: None)
  Receive Date: 20060811
  Receipt Date: 20060801
  Transmission Date: 20061208
  Serious: Yes (Hospitalization)
  Sender: FDA-Public Use
  Company Number: 2006AC01415

PATIENT

DRUGS (3)
  1. QUETIAPINE FUMARATE [Suspect]
     Route: 048
  2. TRAZODONE HCL [Suspect]
  3. DIAZEPAM [Suspect]

REACTIONS (2)
  - BRADYCARDIA [None]
  - INTENTIONAL OVERDOSE [None]
